FAERS Safety Report 13762236 (Version 1)
Quarter: 2017Q3

REPORT INFORMATION
  Report Type: Spontaneous
  Country: US (occurrence: US)
  Receive Date: 20170717
  Receipt Date: 20170717
  Transmission Date: 20171127
  Serious: Yes (Hospitalization)
  Sender: FDA-Public Use
  Company Number: None

PATIENT
  Age: 89 Year
  Sex: Female

DRUGS (22)
  1. NUPLAZID [Suspect]
     Active Substance: PIMAVANSERIN TARTRATE
     Indication: DEMENTIA
     Route: 048
     Dates: start: 201608
  2. SEROQUEL [Concomitant]
     Active Substance: QUETIAPINE FUMARATE
  3. ALBUTEROL NEB [Concomitant]
  4. ADVAIR DISKU AER [Concomitant]
  5. TYLENOL [Concomitant]
     Active Substance: ACETAMINOPHEN
  6. SPIRIVA [Concomitant]
     Active Substance: TIOTROPIUM BROMIDE MONOHYDRATE
  7. NUPLAZID [Suspect]
     Active Substance: PIMAVANSERIN TARTRATE
     Indication: PSYCHOTIC DISORDER
     Route: 048
     Dates: start: 201608
  8. CARB/LEVO [Concomitant]
     Active Substance: CARBIDOPA\LEVODOPA
  9. KEPPRA [Concomitant]
     Active Substance: LEVETIRACETAM
  10. DDAVP [Concomitant]
     Active Substance: DESMOPRESSIN ACETATE
  11. VIMPAT [Concomitant]
     Active Substance: LACOSAMIDE
  12. LEVOTHYROXIN [Concomitant]
     Active Substance: LEVOTHYROXINE
  13. LISINOPRIL. [Concomitant]
     Active Substance: LISINOPRIL
  14. MEMANTINE. [Concomitant]
     Active Substance: MEMANTINE
  15. GALANTAMINE. [Concomitant]
     Active Substance: GALANTAMINE
  16. XANAX XR [Concomitant]
     Active Substance: ALPRAZOLAM
  17. VITAMIN D3 [Concomitant]
     Active Substance: CHOLECALCIFEROL
  18. PLAVIX [Concomitant]
     Active Substance: CLOPIDOGREL BISULFATE
  19. NUPLAZID [Suspect]
     Active Substance: PIMAVANSERIN TARTRATE
     Indication: DELUSIONAL DISORDER, UNSPECIFIED TYPE
     Route: 048
     Dates: start: 201608
  20. MELATONIN [Concomitant]
     Active Substance: MELATONIN
  21. VITAMIN B12 [Concomitant]
     Active Substance: CYANOCOBALAMIN
  22. METOPROLOL TARTRATE. [Concomitant]
     Active Substance: METOPROLOL TARTRATE

REACTIONS (2)
  - Cerebrovascular accident [None]
  - Seizure [None]

NARRATIVE: CASE EVENT DATE: 20170715
